FAERS Safety Report 16754394 (Version 1)
Quarter: 2019Q3

REPORT INFORMATION
  Report Type: Spontaneous
  Country: US (occurrence: US)
  Receive Date: 20190829
  Receipt Date: 20190829
  Transmission Date: 20191005
  Serious: No
  Sender: FDA-Public Use
  Company Number: US-PFIZER INC-2019365515

PATIENT
  Sex: Female

DRUGS (1)
  1. RELPAX [Suspect]
     Active Substance: ELETRIPTAN HYDROBROMIDE
     Dosage: UNK

REACTIONS (10)
  - Influenza like illness [Unknown]
  - Gastrointestinal disorder [Unknown]
  - Migraine [Unknown]
  - Drug ineffective [Unknown]
  - Recalled product administered [Unknown]
  - Vomiting [Unknown]
  - Feeling abnormal [Unknown]
  - Headache [Unknown]
  - Nausea [Unknown]
  - Malaise [Unknown]

NARRATIVE: CASE EVENT DATE: 2019
